FAERS Safety Report 8956491 (Version 2)
Quarter: 2012Q4

REPORT INFORMATION
  Report Type: 
  Country: JP (occurrence: JP)
  Receive Date: 20121210
  Receipt Date: 20121211
  Transmission Date: 20130627
  Serious: Yes (Hospitalization)
  Sender: FDA-Public Use
  Company Number: JP-PFIZER INC-2012306885

PATIENT
  Age: 85 Year
  Sex: Female

DRUGS (3)
  1. LYRICA [Suspect]
     Dosage: 75 mg/day before bedtime
     Route: 048
     Dates: start: 20121130, end: 20121130
  2. AMARYL [Suspect]
     Dosage: UNK
     Route: 048
     Dates: start: 20121130, end: 20121130
  3. ASPARA [Suspect]
     Dosage: UNK
     Route: 048
     Dates: start: 20121130, end: 20121130

REACTIONS (4)
  - Fall [Unknown]
  - Contusion [Unknown]
  - Drug eruption [Unknown]
  - Eczema [Unknown]
